FAERS Safety Report 10047202 (Version 1)
Quarter: 2014Q1

REPORT INFORMATION
  Report Type: Spontaneous
  Country: US (occurrence: US)
  Receive Date: 20140331
  Receipt Date: 20140331
  Transmission Date: 20141002
  Serious: No
  Sender: FDA-Public Use
  Company Number: US-MYLANLABS-2013S1019184

PATIENT
  Age: 43 Year
  Sex: Female
  Weight: 75.3 kg

DRUGS (3)
  1. FENTANYL TRANSDERMAL SYSTEM [Suspect]
     Indication: MUSCULOSKELETAL PAIN
     Dosage: Q3D
     Route: 062
     Dates: start: 201305
  2. HYDROCODONE [Concomitant]
     Indication: RHEUMATOID ARTHRITIS
  3. MOBID [Concomitant]
     Indication: RHEUMATOID ARTHRITIS

REACTIONS (4)
  - Amenorrhoea [Not Recovered/Not Resolved]
  - Blood glucose increased [Not Recovered/Not Resolved]
  - Muscular weakness [Not Recovered/Not Resolved]
  - Dizziness [Not Recovered/Not Resolved]
